FAERS Safety Report 6690474-8 (Version None)
Quarter: 2010Q2

REPORT INFORMATION
  Report Type: 
  Country: None (occurrence: None)
  Receive Date: 20100419
  Receipt Date: 20100419
  Transmission Date: 20101027
  Serious: No
  Sender: FDA-Public Use
  Company Number: None

PATIENT
  Age: 70 Year
  Sex: Female
  Weight: 68.0396 kg

DRUGS (2)
  1. FLOVENT HFA [Suspect]
     Indication: BRONCHITIS
     Dosage: 1 TSP EVERY 6 HRS BY MOUTH
     Route: 048
     Dates: start: 20100315
  2. PROMETHAZINE W/ CODEINE [Suspect]
     Indication: BRONCHITIS
     Dosage: 2 PUFFS 2TIMES A DAY INHAL
     Route: 055
     Dates: start: 20100315

REACTIONS (6)
  - ASTHENIA [None]
  - DIZZINESS [None]
  - HEADACHE [None]
  - HYPERHIDROSIS [None]
  - NAUSEA [None]
  - NERVOUSNESS [None]
